FAERS Safety Report 12762885 (Version 8)
Quarter: 2017Q1

REPORT INFORMATION
  Report Type: Report from Study
  Country: US (occurrence: US)
  Receive Date: 20160920
  Receipt Date: 20170208
  Transmission Date: 20170428
  Serious: Yes (Hospitalization, Other)
  Sender: FDA-Public Use
  Company Number: US-REGENERON PHARMACEUTICALS, INC.-2016-19997

PATIENT

DRUGS (19)
  1. LISINOPRIL. [Concomitant]
     Active Substance: LISINOPRIL
     Indication: HYPERTENSION
     Dosage: 10 MG MILLIGRAM(S), QD
     Route: 048
     Dates: start: 2002, end: 20160722
  2. TOVIAZ [Concomitant]
     Active Substance: FESOTERODINE FUMARATE
     Indication: INCONTINENCE
     Dosage: 4 MG MILLIGRAM(S), QD
     Route: 048
     Dates: start: 2012, end: 20160722
  3. XARELTO [Concomitant]
     Active Substance: RIVAROXABAN
     Indication: ATRIAL FIBRILLATION
     Dosage: 15 MG MILLIGRAM(S), QD
     Route: 048
     Dates: start: 2014, end: 20160722
  4. NORMAL SALINE [Concomitant]
     Active Substance: SODIUM CHLORIDE
     Dosage: 0.9 OTHER
     Route: 042
     Dates: start: 20160722, end: 20160723
  5. FINASTERIDE. [Concomitant]
     Active Substance: FINASTERIDE
     Indication: PROSTATOMEGALY
     Dosage: 5 MG MILLIGRAM(S), QD
     Route: 048
     Dates: start: 2004, end: 20160722
  6. LISINOPRIL. [Concomitant]
     Active Substance: LISINOPRIL
     Dosage: 10 UNK, UNK
     Route: 048
     Dates: start: 20160723, end: 20160725
  7. HALDOL [Concomitant]
     Active Substance: HALOPERIDOL
     Indication: ANXIETY
     Dosage: 0.5 MG MILLIGRAM(S), AS NECESSARY
     Route: 042
     Dates: start: 20160723, end: 20160727
  8. EYLEA [Suspect]
     Active Substance: AFLIBERCEPT
     Indication: NEOVASCULAR AGE-RELATED MACULAR DEGENERATION
     Dosage: MASKED, RIGHT EYE (OD)
     Route: 031
     Dates: start: 20160412, end: 20160705
  9. ATORVASTATIN [Concomitant]
     Active Substance: ATORVASTATIN
     Dosage: 40 MG MILLIGRAM(S), QD
     Route: 048
     Dates: start: 20160723, end: 20160724
  10. POTASSIUM CHLORIDE. [Concomitant]
     Active Substance: POTASSIUM CHLORIDE
     Indication: HYPOKALAEMIA
     Dosage: 20 OTHER
     Route: 042
     Dates: start: 20160722, end: 20160727
  11. ATIVAN [Concomitant]
     Active Substance: LORAZEPAM
     Indication: ANXIETY
     Dosage: 0.5 MG MILLIGRAM(S), UNK
     Route: 042
     Dates: start: 20160722, end: 20160723
  12. TAMSULOSIN [Concomitant]
     Active Substance: TAMSULOSIN
     Indication: PROSTATOMEGALY
     Dosage: 0.4 MG MILLIGRAM(S), QD
     Route: 048
     Dates: start: 2013, end: 20160722
  13. TIROSINT [Concomitant]
     Active Substance: LEVOTHYROXINE SODIUM
     Indication: HYPOTHYROIDISM
     Dosage: 75 MICROGRAM(S), QD
     Route: 048
     Dates: start: 1986, end: 20160722
  14. ISTALOL [Concomitant]
     Active Substance: TIMOLOL MALEATE
     Indication: GLAUCOMA
     Dosage: DROP, QD, RIGHT (OD)
     Route: 047
     Dates: start: 20160330, end: 20160722
  15. NORMAL SALINE [Concomitant]
     Active Substance: SODIUM CHLORIDE
     Indication: PRODUCT USED FOR UNKNOWN INDICATION
     Dosage: CONTINUOUS INFUSION
     Route: 042
     Dates: start: 20160722, end: 20160727
  16. SODIUM PHOSPHATE [Concomitant]
     Active Substance: SODIUM PHOSPHATE
     Indication: BLOOD PHOSPHORUS DECREASED
     Dosage: 15 ML MILLILITRE(S), SINGLE
     Route: 042
     Dates: start: 20160723, end: 20160723
  17. MAGNESIUM SULFATE. [Concomitant]
     Active Substance: MAGNESIUM SULFATE
     Indication: BLOOD MAGNESIUM
     Dosage: UNK, BID
     Route: 042
     Dates: start: 20160723, end: 20160723
  18. ATORVASTATIN [Concomitant]
     Active Substance: ATORVASTATIN
     Indication: HYPERCHOLESTEROLAEMIA
     Dosage: 40 MG MILLIGRAM(S), QD
     Route: 048
     Dates: start: 2001, end: 20160722
  19. OCUVITE [Concomitant]
     Active Substance: VITAMINS
     Indication: DRY AGE-RELATED MACULAR DEGENERATION
     Dosage: 2 TAB,QD, LEFT AND RIGHT (OU)
     Route: 048
     Dates: start: 2001, end: 20160722

REACTIONS (1)
  - Encephalopathy [Recovered/Resolved]

NARRATIVE: CASE EVENT DATE: 20160724
